FAERS Safety Report 8439030 (Version 2)
Quarter: 2013Q2

REPORT INFORMATION
  Report Type: Spontaneous
  Country: US (occurrence: None)
  Receive Date: 20120104
  Receipt Date: 20120508
  Transmission Date: 20140414
  Serious: Yes (Other)
  Sender: FDA-Public Use
  Company Number: 2011HGS-002829

PATIENT
  Age: 46 Year
  Sex: Female
  Weight: 69.85 kg

DRUGS (9)
  1. BENLYSTA [Suspect]
     Indication: SYSTEMIC LUPUS ERYTHEMATOSUS
     Dosage: 1  IN 28 D, INTRAVENOUS DRIP
     Route: 041
     Dates: start: 20110715
  2. AMBIEN [Concomitant]
  3. XANAX (ALPRAZOLAM) [Concomitant]
  4. PHENERGAN (PROMETHAZINE) [Concomitant]
  5. LASIX (FUROSEMIDE) [Concomitant]
  6. POTASSIUM [Concomitant]
  7. CORTEF (HYDROCORTISONE ACETATE) [Concomitant]
  8. MS CONTIN (MORPHINE SULFATE) [Concomitant]
  9. CONTINUOUS OXYGEN (OXYGEN) [Concomitant]

REACTIONS (1)
  - PYREXIA [None]
